FAERS Safety Report 6053895-2 (Version None)
Quarter: 2009Q1

REPORT INFORMATION
  Report Type: 
  Country: None (occurrence: None)
  Receive Date: 20090123
  Receipt Date: 20080724
  Transmission Date: 20090719
  Serious: Yes (Life-Threatening, Hospitalization)
  Sender: FDA-Public Use
  Company Number: US025302

PATIENT
  Age: 72 Year
  Sex: Female

DRUGS (6)
  1. RIBOMUSTIN [Suspect]
     Indication: CHRONIC LYMPHOCYTIC LEUKAEMIA
     Dosage: 150 MG/M2 CYCLIC INTRAVENOUS
     Route: 042
     Dates: start: 20080618
  2. GRANISETRON [Concomitant]
  3. ALLOPURINOL [Concomitant]
  4. DEXAMETHASONE [Concomitant]
  5. METOCLOPRAMIDE [Concomitant]
  6. ACETAMINOPHEN [Concomitant]

REACTIONS (6)
  - ACUTE PRERENAL FAILURE [None]
  - DEHYDRATION [None]
  - DRUG HYPERSENSITIVITY [None]
  - NAUSEA [None]
  - PYREXIA [None]
  - VOMITING [None]
